FAERS Safety Report 13235449 (Version 2)
Quarter: 2017Q2

REPORT INFORMATION
  Report Type: Spontaneous
  Country: AU (occurrence: AU)
  Receive Date: 20170215
  Receipt Date: 20170426
  Transmission Date: 20170830
  Serious: Yes (Other)
  Sender: FDA-Public Use
  Company Number: AU-PFIZER INC-2017063607

PATIENT
  Age: 31 Year
  Sex: Male

DRUGS (2)
  1. EFFEXOR XR [Suspect]
     Active Substance: VENLAFAXINE HYDROCHLORIDE
     Indication: MAJOR DEPRESSION
     Dosage: 225 MG, 1X/DAY IN THE MORNING
     Route: 048
     Dates: start: 20161123
  2. EFFEXOR XR [Suspect]
     Active Substance: VENLAFAXINE HYDROCHLORIDE
     Dosage: 150 MG, UNK
     Dates: end: 201702

REACTIONS (6)
  - Vision blurred [Recovered/Resolved]
  - Headache [Recovered/Resolved]
  - Ocular discomfort [Recovered/Resolved]
  - Intentional product use issue [Recovered/Resolved]
  - Macular oedema [Recovered/Resolved]
  - Eye pain [Recovered/Resolved]

NARRATIVE: CASE EVENT DATE: 20161226
